FAERS Safety Report 23041091 (Version 5)
Quarter: 2023Q4

REPORT INFORMATION
  Report Type: Spontaneous
  Country: US (occurrence: US)
  Receive Date: 20231007
  Receipt Date: 20231102
  Transmission Date: 20240109
  Serious: No
  Sender: FDA-Public Use
  Company Number: US-UNITED THERAPEUTICS-UNT-2023-027983

PATIENT
  Sex: Female
  Weight: 81.633 kg

DRUGS (11)
  1. REMODULIN [Suspect]
     Active Substance: TREPROSTINIL
     Indication: Pulmonary arterial hypertension
     Dosage: 0.071 ?G/KG, CONTINUING (PHARMACY PREFILLED WITH 3 ML PER CASSETTE, PUMP RATE OF 34 MCL PER HOUR)
     Route: 058
     Dates: start: 2023, end: 2023
  2. REMODULIN [Suspect]
     Active Substance: TREPROSTINIL
     Dosage: 0.065 ?G/KG, CONTINUING
     Route: 058
     Dates: start: 202310
  3. REMODULIN [Suspect]
     Active Substance: TREPROSTINIL
     Dosage: UNK, CONTINUING
     Route: 058
     Dates: start: 20230420, end: 202310
  4. TREPROSTINIL [Suspect]
     Active Substance: TREPROSTINIL
     Indication: Pulmonary arterial hypertension
     Dosage: UNK UNK, CONTINUING
     Route: 041
     Dates: start: 20231023
  5. FUROSEMIDE [Concomitant]
     Active Substance: FUROSEMIDE
     Indication: Product used for unknown indication
     Dosage: UNK
     Route: 065
  6. HYDROXYCHLOROQUINE SULFATE [Concomitant]
     Active Substance: HYDROXYCHLOROQUINE SULFATE
     Indication: Product used for unknown indication
     Route: 065
  7. TADALAFIL [Concomitant]
     Active Substance: TADALAFIL
     Indication: Product used for unknown indication
     Dosage: UNK
     Route: 065
  8. COMPAZINE [Concomitant]
     Active Substance: PROCHLORPERAZINE MALEATE
     Indication: Product used for unknown indication
     Route: 065
  9. OPSUMIT [Concomitant]
     Active Substance: MACITENTAN
     Indication: Product used for unknown indication
     Dosage: UNK
     Route: 065
  10. SODIUM CHLORIDE [Concomitant]
     Active Substance: SODIUM CHLORIDE
     Indication: Product used for unknown indication
     Dosage: UNK
     Route: 065
  11. XARELTO [Concomitant]
     Active Substance: RIVAROXABAN
     Indication: Product used for unknown indication
     Dosage: UNK
     Route: 065

REACTIONS (14)
  - Dermatitis contact [Unknown]
  - Infusion site infection [Unknown]
  - Device maintenance issue [Unknown]
  - Infusion site discharge [Unknown]
  - Device leakage [Recovered/Resolved]
  - Infusion site swelling [Unknown]
  - Infusion site reaction [Unknown]
  - Infusion site erythema [Unknown]
  - Infusion site pruritus [Unknown]
  - Infusion site pain [Unknown]
  - Infusion site discharge [Unknown]
  - Device dislocation [Unknown]
  - Rash erythematous [Unknown]
  - Injection site rash [Unknown]

NARRATIVE: CASE EVENT DATE: 20230101
